FAERS Safety Report 17994284 (Version 1)
Quarter: 2020Q3

REPORT INFORMATION
  Report Type: Spontaneous
  Country: US (occurrence: US)
  Receive Date: 20200708
  Receipt Date: 20200708
  Transmission Date: 20201103
  Serious: Yes (Hospitalization)
  Sender: FDA-Public Use
  Company Number: None

PATIENT
  Sex: Female
  Weight: 14.8 kg

DRUGS (3)
  1. CYCLOPHOSPHAMIDE (26271) [Suspect]
     Active Substance: CYCLOPHOSPHAMIDE
     Dates: end: 20200626
  2. VINCRISTINE SULFATE. [Suspect]
     Active Substance: VINCRISTINE SULFATE
     Dosage: ?          OTHER DOSE:.9 MG;?
     Dates: end: 20200626
  3. DACTINOMYCIN [Suspect]
     Active Substance: DACTINOMYCIN
     Dosage: ?          OTHER DOSE:.7 MG;?
     Dates: end: 20200626

REACTIONS (6)
  - Lung opacity [None]
  - Hypoxia [None]
  - Pyrexia [None]
  - Tachycardia [None]
  - Total lung capacity decreased [None]
  - Tachypnoea [None]

NARRATIVE: CASE EVENT DATE: 20200702
